FAERS Safety Report 4359061-0 (Version None)
Quarter: 2004Q2

REPORT INFORMATION
  Report Type: 
  Country: None (occurrence: None)
  Receive Date: 20040517
  Receipt Date: 20030124
  Transmission Date: 20050107
  Serious: Yes (Disabling)
  Sender: FDA-Public Use
  Company Number: JP-ROCHE-330341

PATIENT
  Age: 49 Year
  Sex: Male
  Weight: 63 kg

DRUGS (7)
  1. CELLCEPT [Suspect]
     Route: 048
     Dates: start: 20020621
  2. CELLCEPT [Suspect]
     Route: 048
     Dates: start: 20020914
  3. CELLCEPT [Suspect]
     Route: 048
     Dates: start: 20020926
  4. CELLCEPT [Suspect]
     Route: 048
     Dates: start: 20020927
  5. PROGRAF [Suspect]
     Route: 048
     Dates: start: 20020711, end: 20020913
  6. CYCLOSPORINE [Suspect]
     Route: 065
     Dates: start: 20020702, end: 20020704
  7. PREDONINE [Concomitant]

REACTIONS (4)
  - CHEST DISCOMFORT [None]
  - HEADACHE [None]
  - MALAISE [None]
  - THROMBOTIC THROMBOCYTOPENIC PURPURA [None]
